FAERS Safety Report 23879376 (Version 1)
Quarter: 2024Q2

REPORT INFORMATION
  Report Type: Spontaneous
  Country: US (occurrence: None)
  Receive Date: 20240520
  Receipt Date: 20240520
  Transmission Date: 20240715
  Serious: Yes (Hospitalization)
  Sender: FDA-Public Use
  Company Number: None

PATIENT
  Age: 66 Year
  Sex: Female

DRUGS (22)
  1. TACROLIMUS [Suspect]
     Active Substance: TACROLIMUS
     Indication: Heart transplant
     Dosage: 1 MG TWICE A DAY ORAL
     Route: 048
  2. LOPERAMIDE [Concomitant]
  3. ACETAMINOPHEN [Concomitant]
  4. AMLODIPINE [Concomitant]
  5. Aspirin chewable tabs [Concomitant]
  6. ATORVASTATIN [Concomitant]
  7. CARVEDILOL [Concomitant]
  8. DULOXETINE DR [Concomitant]
  9. ELIQUIS [Concomitant]
  10. FAMOTIDINE [Concomitant]
  11. GABAPENTIN [Concomitant]
  12. ISOSORBIDE MONONITRATE [Concomitant]
  13. metoprolol ER [Concomitant]
  14. MONTELUKAST [Concomitant]
  15. PREDNISONE [Concomitant]
  16. ROSUVASTATIN [Concomitant]
  17. BACTRIM [Concomitant]
  18. TACROLIMUS [Concomitant]
  19. TRULICITY [Concomitant]
  20. Valganciclovir, voriconazole [Concomitant]
  21. Ventolin HFA inhaler, Vit E [Concomitant]
  22. Vitamin C , Vit D3 [Concomitant]

REACTIONS (2)
  - Renal disorder [None]
  - Dialysis [None]

NARRATIVE: CASE EVENT DATE: 20240124
